FAERS Safety Report 6635734-1 (Version None)
Quarter: 2010Q1

REPORT INFORMATION
  Report Type: 
  Country: None (occurrence: None)
  Receive Date: 20100309
  Receipt Date: 20100226
  Transmission Date: 20100710
  Serious: Yes (Other)
  Sender: FDA-Public Use
  Company Number: 2009SP019454

PATIENT
  Sex: Female

DRUGS (1)
  1. NOVIAL (DESOGESTREL/ETHINYLESTRADIOL /00570801/) [Suspect]
     Dosage: PO
     Route: 048

REACTIONS (2)
  - MULTIPLE SCLEROSIS [None]
  - NEURITIS [None]
